FAERS Safety Report 14291129 (Version 1)
Quarter: 2017Q4

REPORT INFORMATION
  Report Type: Report from Study
  Country: None (occurrence: CA)
  Receive Date: 20171215
  Receipt Date: 20171215
  Transmission Date: 20180321
  Serious: Yes (Hospitalization, Congenital Anomaly, Other)
  Sender: FDA-Public Use
  Company Number: CA-ABBVIE-17K-028-2190027-00

PATIENT
  Sex: Female

DRUGS (1)
  1. HUMIRA [Suspect]
     Active Substance: ADALIMUMAB
     Indication: CROHN^S DISEASE
     Route: 058
     Dates: start: 20161103, end: 20171123

REACTIONS (5)
  - Hepatic vascular thrombosis [Not Recovered/Not Resolved]
  - Factor V Leiden mutation [Not Recovered/Not Resolved]
  - Sinusitis [Not Recovered/Not Resolved]
  - Crohn^s disease [Not Recovered/Not Resolved]
  - Pelvic pain [Not Recovered/Not Resolved]

NARRATIVE: CASE EVENT DATE: 2017
